FAERS Safety Report 8461197-X (Version None)
Quarter: 2012Q2

REPORT INFORMATION
  Report Type: 
  Country: None (occurrence: None)
  Receive Date: 20120323
  Receipt Date: 20110608
  Transmission Date: 20120825
  Serious: Yes (Hospitalization)
  Sender: FDA-Public Use
  Company Number: 163-21880-11061867

PATIENT
  Age: 72 Year
  Sex: Female
  Weight: 57 kg

DRUGS (3)
  1. REVLIMID [Suspect]
     Indication: MULTIPLE MYELOMA
     Dosage: 15 MG, DAILY FOR 3WKS, 1WK OFF, PO; 15 MG , DAILY FOR 3WKS, 1 WK OFF, PO
     Route: 048
     Dates: start: 20110203
  2. REVLIMID [Suspect]
     Indication: MULTIPLE MYELOMA
     Dosage: 15 MG, DAILY FOR 3WKS, 1WK OFF, PO; 15 MG , DAILY FOR 3WKS, 1 WK OFF, PO
     Route: 048
     Dates: start: 20110121
  3. DECADRON [Concomitant]

REACTIONS (1)
  - BRONCHITIS [None]
